FAERS Safety Report 23291992 (Version 1)
Quarter: 2023Q4

REPORT INFORMATION
  Report Type: Spontaneous
  Country: US (occurrence: None)
  Receive Date: 20231212
  Receipt Date: 20231212
  Transmission Date: 20240110
  Serious: No
  Sender: FDA-Public Use
  Company Number: None

PATIENT
  Sex: Female

DRUGS (2)
  1. COSENTYX [Suspect]
     Active Substance: SECUKINUMAB
     Indication: Psoriasis
     Dosage: 300MG EVERY 4 WEEKS SUBCUTANEOUSLY
     Route: 058
     Dates: start: 201909
  2. COSENTYX [Suspect]
     Active Substance: SECUKINUMAB
     Indication: Arthritis

REACTIONS (1)
  - Drug ineffective [None]
